FAERS Safety Report 8010128 (Version 16)
Quarter: 2013Q1

REPORT INFORMATION
  Report Type: Spontaneous
  Country: US (occurrence: US)
  Receive Date: 20110627
  Receipt Date: 20130125
  Transmission Date: 20140127
  Serious: Yes (Death, Hospitalization, Other)
  Sender: FDA-Public Use
  Company Number: PHEH2011US00497

PATIENT
  Age: 80 Year
  Sex: Male

DRUGS (7)
  1. ZOMETA [Suspect]
     Indication: METASTASES TO BONE
     Dates: start: 2002, end: 2004
  2. ZOMETA [Suspect]
     Indication: PROSTATE CANCER METASTATIC
  3. AREDIA [Suspect]
  4. SUNITINIB [Suspect]
  5. AUGMENTIN [Concomitant]
  6. METOPROLOL [Concomitant]
  7. GLYBURIDE [Concomitant]

REACTIONS (126)
  - Death [Fatal]
  - Haematochezia [Unknown]
  - Dysarthria [Unknown]
  - Convulsion [Unknown]
  - Osteonecrosis of jaw [Unknown]
  - Pain [Unknown]
  - Infection [Unknown]
  - Deformity [Unknown]
  - Toothache [Unknown]
  - Tooth fracture [Unknown]
  - Osteoradionecrosis [Unknown]
  - Injury [Unknown]
  - Emotional distress [Unknown]
  - Cardiomegaly [Unknown]
  - Metastases to liver [Unknown]
  - Metastatic malignant melanoma [Unknown]
  - Metastases to bone [Unknown]
  - Rectal haemorrhage [Unknown]
  - Mental status changes [Unknown]
  - Diverticulum intestinal [Unknown]
  - Gangrene [Unknown]
  - Osteomyelitis [Unknown]
  - Skin cancer [Unknown]
  - Metastases to central nervous system [Unknown]
  - Atrophy [Unknown]
  - Atelectasis [Unknown]
  - Lacunar infarction [Unknown]
  - Ischaemia [Unknown]
  - Arteriosclerosis [Unknown]
  - Osteopenia [Unknown]
  - Spinal osteoarthritis [Unknown]
  - Osteoarthritis [Unknown]
  - Aspiration [Unknown]
  - Vascular calcification [Unknown]
  - Hypertension [Unknown]
  - Diabetes mellitus [Unknown]
  - Coronary artery disease [Unknown]
  - Wound [Unknown]
  - Cellulitis [Unknown]
  - Localised infection [Unknown]
  - Pseudomonas infection [Unknown]
  - Rash erythematous [Unknown]
  - Peripheral vascular disorder [Unknown]
  - Purulent discharge [Unknown]
  - Renal failure [Unknown]
  - Deafness bilateral [Unknown]
  - Anaemia [Unknown]
  - Sinus bradycardia [Unknown]
  - Abscess [Unknown]
  - Cerebral small vessel ischaemic disease [Unknown]
  - Retroperitoneal lymphadenopathy [Unknown]
  - Gynaecomastia [Unknown]
  - Cerebral atrophy [Unknown]
  - Cerebral ventricle dilatation [Unknown]
  - Ingrowing nail [Unknown]
  - Skin ulcer [Unknown]
  - Joint swelling [Unknown]
  - Decubitus ulcer [Unknown]
  - Neuropathy peripheral [Unknown]
  - Oedema peripheral [Unknown]
  - Fall [Unknown]
  - Arterial stenosis [Unknown]
  - Amnesia [Unknown]
  - Skin necrosis [Unknown]
  - Dyslipidaemia [Unknown]
  - Diabetic foot infection [Unknown]
  - Left atrial dilatation [Unknown]
  - Mitral valve incompetence [Unknown]
  - Tricuspid valve incompetence [Unknown]
  - Pulmonary valve incompetence [Unknown]
  - Herpes zoster [Unknown]
  - Haemorrhage [Unknown]
  - Urinary tract infection [Unknown]
  - Escherichia infection [Unknown]
  - Urinary incontinence [Unknown]
  - Depression [Unknown]
  - Encephalopathy [Unknown]
  - Pneumonia [Unknown]
  - Porokeratosis [Unknown]
  - Diabetic neuropathy [Unknown]
  - Diabetic nephropathy [Unknown]
  - Atrial fibrillation [Unknown]
  - Cardiomyopathy [Unknown]
  - Hyperlipidaemia [Unknown]
  - Gout [Unknown]
  - Hiatus hernia [Unknown]
  - Nephrolithiasis [Unknown]
  - Impaired healing [Unknown]
  - Peripheral arterial occlusive disease [Unknown]
  - Diabetic retinopathy [Unknown]
  - Macular degeneration [Unknown]
  - Blindness [Unknown]
  - Squamous cell carcinoma [Unknown]
  - Basal cell carcinoma [Unknown]
  - Lung hyperinflation [Unknown]
  - Pulmonary granuloma [Unknown]
  - Bone lesion [Unknown]
  - Gastric cancer [Unknown]
  - Renal failure chronic [Unknown]
  - Influenza [Unknown]
  - Diplegia [Unknown]
  - Seborrhoeic keratosis [Unknown]
  - Hepatic fibrosis [Unknown]
  - Hepatic lesion [Unknown]
  - Hyperhomocysteinaemia [Unknown]
  - Myocardial infarction [Unknown]
  - Device failure [Unknown]
  - Osteolysis [Unknown]
  - Onychomycosis [Unknown]
  - Dyskinesia [Unknown]
  - Pain in jaw [Unknown]
  - Osteonecrosis [Unknown]
  - Neoplasm malignant [Unknown]
  - Second primary malignancy [Unknown]
  - Hyperparathyroidism [Unknown]
  - Arteriosclerosis coronary artery [Unknown]
  - Metastases to spine [Unknown]
  - Chronic obstructive pulmonary disease [Unknown]
  - Gastrooesophageal reflux disease [Unknown]
  - Hepatic mass [Unknown]
  - Stomatitis [Unknown]
  - Haemorrhoids [Unknown]
  - Metastases to reproductive organ [Unknown]
  - Dysphagia [Unknown]
  - Alcohol abuse [Recovered/Resolved]
  - Substance abuse [Recovered/Resolved]
